FAERS Safety Report 19448580 (Version 2)
Quarter: 2021Q4

REPORT INFORMATION
  Report Type: Spontaneous
  Country: US (occurrence: US)
  Receive Date: 20210622
  Receipt Date: 20211208
  Transmission Date: 20220304
  Serious: No
  Sender: FDA-Public Use
  Company Number: US-PFIZER INC-2021625552

PATIENT
  Age: 73 Year
  Sex: Male

DRUGS (2)
  1. PREGABALIN [Suspect]
     Active Substance: PREGABALIN
     Dosage: UNK (HIGHER DOSE)
  2. PREGABALIN [Suspect]
     Active Substance: PREGABALIN
     Dosage: UNK (ANOTHER HIGHER DOSE)

REACTIONS (2)
  - Drug ineffective [Unknown]
  - Overdose [Unknown]
